FAERS Safety Report 6727506-4 (Version None)
Quarter: 2010Q2

REPORT INFORMATION
  Report Type: 
  Country: None (occurrence: None)
  Receive Date: 20100517
  Receipt Date: 20100507
  Transmission Date: 20101027
  Serious: Yes (Death, Hospitalization, Other)
  Sender: FDA-Public Use
  Company Number: GB-BRISTOL-MYERS SQUIBB COMPANY-15084791

PATIENT
  Age: 46 Year
  Sex: Male

DRUGS (13)
  1. CARBOPLATIN [Suspect]
     Indication: CHEMOTHERAPY
  2. FLUDROCORTISONE [Suspect]
     Indication: HYPONATRAEMIA
     Route: 042
  3. MORPHINE SULFATE [Suspect]
     Indication: PAIN PROPHYLAXIS
  4. WARFARIN SODIUM [Suspect]
     Indication: DEEP VEIN THROMBOSIS
  5. WARFARIN SODIUM [Suspect]
     Indication: PULMONARY EMBOLISM
  6. HYDROCORTISONE [Suspect]
     Route: 042
  7. DEXAMETHASONE [Suspect]
     Indication: ROUTINE HEALTH MAINTENANCE
     Dosage: DOSAE INCREASED FROM 2 MG TO 4MG
     Route: 048
  8. DEXAMETHASONE [Suspect]
     Indication: FATIGUE
     Dosage: DOSAE INCREASED FROM 2 MG TO 4MG
     Route: 048
  9. DIAMORPHINE [Suspect]
     Indication: PAIN
     Route: 058
  10. KETAMINE HCL [Suspect]
     Indication: ANALGESIC THERAPY
  11. MIDAZOLAM HCL [Suspect]
     Indication: PAIN
     Route: 058
  12. NULYTELY [Suspect]
     Indication: CONSTIPATION
     Dosage: 6DF-6SACHETS
  13. NAPROXEN [Suspect]
     Indication: PAIN

REACTIONS (8)
  - ADRENAL INSUFFICIENCY [None]
  - CONSTIPATION [None]
  - DEEP VEIN THROMBOSIS [None]
  - HAEMORRHAGE [None]
  - HYPERKALAEMIA [None]
  - HYPONATRAEMIA [None]
  - MALIGNANT NEOPLASM PROGRESSION [None]
  - PULMONARY EMBOLISM [None]
